FAERS Safety Report 9001573 (Version 1)
Quarter: 2013Q1

REPORT INFORMATION
  Report Type: Spontaneous
  Country: US (occurrence: US)
  Receive Date: 20130107
  Receipt Date: 20130107
  Transmission Date: 20140127
  Serious: No
  Sender: FDA-Public Use
  Company Number: US-PFIZER INC-2013001792

PATIENT
  Sex: 0

DRUGS (2)
  1. GENOTROPIN [Suspect]
     Dosage: 3.7 MG, DAILY
  2. GENOTROPIN [Suspect]
     Dosage: 3.0 MG, DAILY

REACTIONS (1)
  - Vomiting [Unknown]
